FAERS Safety Report 17508674 (Version 1)
Quarter: 2020Q1

REPORT INFORMATION
  Report Type: Report from Study
  Country: CO (occurrence: CO)
  Receive Date: 20200306
  Receipt Date: 20200306
  Transmission Date: 20200409
  Serious: Yes (Other)
  Sender: FDA-Public Use
  Company Number: CO-ROCHE-2495262

PATIENT
  Sex: Female

DRUGS (4)
  1. PREDNISOLONE. [Concomitant]
     Active Substance: PREDNISOLONE
  2. MABTHERA [Suspect]
     Active Substance: RITUXIMAB
     Indication: ARTHRITIS
     Route: 065
  3. ARAVA [Concomitant]
     Active Substance: LEFLUNOMIDE
  4. LABETALOL [Concomitant]
     Active Substance: LABETALOL\LABETALOL HYDROCHLORIDE

REACTIONS (13)
  - Abdominal distension [Unknown]
  - Hepatitis [Unknown]
  - Swelling face [Unknown]
  - Swelling [Unknown]
  - Malaise [Unknown]
  - Blood pressure fluctuation [Unknown]
  - Hepatic pain [Unknown]
  - Hepatomegaly [Unknown]
  - Liver injury [Unknown]
  - Constipation [Unknown]
  - Dizziness [Unknown]
  - Arthropathy [Unknown]
  - Contusion [Unknown]
